FAERS Safety Report 12853878 (Version 3)
Quarter: 2016Q4

REPORT INFORMATION
  Report Type: Report from Study
  Country: BR (occurrence: BR)
  Receive Date: 20161017
  Receipt Date: 20161123
  Transmission Date: 20170207
  Serious: Yes (Other)
  Sender: FDA-Public Use
  Company Number: PHHY2015BR093893

PATIENT
  Sex: Female
  Weight: 100 kg

DRUGS (8)
  1. LOSARTAN. [Concomitant]
     Active Substance: LOSARTAN
     Indication: HYPERTENSION
     Dosage: 2 DF, QD
     Route: 048
  2. RIVOTRIL [Concomitant]
     Active Substance: CLONAZEPAM
     Indication: SLEEP DISORDER
     Dosage: 1 DF, QD
     Route: 048
  3. OXYGEN. [Concomitant]
     Active Substance: OXYGEN
     Indication: EMPHYSEMA
     Route: 065
  4. CABERGOLINA [Concomitant]
     Active Substance: CABERGOLINE
     Indication: ACROMEGALY
     Dosage: 1 DF, QOD
     Route: 048
     Dates: start: 201605
  5. AAS [Concomitant]
     Active Substance: ASPIRIN
     Indication: HYPERTENSION
     Dosage: 1 DF, QD
     Route: 048
  6. SANDOSTATIN LAR DEPOT [Suspect]
     Active Substance: OCTREOTIDE ACETATE
     Indication: ACROMEGALY
     Dosage: 1 DF, QMO (1 APPLICATION EVERY 28 DAYS)
     Route: 030
     Dates: start: 2014
  7. PURAN [Concomitant]
     Active Substance: LEVOTHYROXINE SODIUM
     Indication: HYPOTHYROIDISM
     Dosage: 1 DF, QD
     Route: 048
  8. MODURETIC 5-50 [Concomitant]
     Active Substance: AMILORIDE HYDROCHLORIDE\HYDROCHLOROTHIAZIDE
     Indication: HYPERTENSION
     Dosage: 1 DF, QD
     Route: 048

REACTIONS (27)
  - Pain in extremity [Not Recovered/Not Resolved]
  - Gait disturbance [Not Recovered/Not Resolved]
  - Weight increased [Recovering/Resolving]
  - Bone deformity [Recovering/Resolving]
  - Weight decreased [Unknown]
  - Joint injury [Unknown]
  - Haematoma [Unknown]
  - Fall [Recovering/Resolving]
  - Chest injury [Recovering/Resolving]
  - Depression [Unknown]
  - Malaise [Unknown]
  - Pain [Recovering/Resolving]
  - Contusion [Recovering/Resolving]
  - Accident at home [Recovering/Resolving]
  - Psychiatric symptom [Unknown]
  - Somnolence [Unknown]
  - Decreased activity [Unknown]
  - Dysstasia [Not Recovered/Not Resolved]
  - Mass [Recovering/Resolving]
  - Osteoarthritis [Not Recovered/Not Resolved]
  - Inadequate lubrication [Recovering/Resolving]
  - Fluid retention [Unknown]
  - Arthralgia [Not Recovered/Not Resolved]
  - Condition aggravated [Not Recovered/Not Resolved]
  - Skin discolouration [Recovering/Resolving]
  - Bone pain [Unknown]
  - Intracranial aneurysm [Not Recovered/Not Resolved]

NARRATIVE: CASE EVENT DATE: 2015
